FAERS Safety Report 6575847-6 (Version None)
Quarter: 2010Q1

REPORT INFORMATION
  Report Type: 
  Country: None (occurrence: None)
  Receive Date: 20100202
  Receipt Date: 20100118
  Transmission Date: 20100710
  Serious: Yes (Death)
  Sender: FDA-Public Use
  Company Number: 2010S1000057

PATIENT
  Age: 34 Year
  Sex: Female

DRUGS (12)
  1. ROXICODONE [Suspect]
     Dosage: PO
     Route: 048
     Dates: end: 20080101
  2. METOPROLOL TARTRATE [Suspect]
     Dosage: PO
     Route: 048
     Dates: end: 20090101
  3. CALCIUM ANTAGONIST [Suspect]
     Dosage: PO
     Route: 048
     Dates: end: 20080101
  4. AMITRIPTYLINE HCL [Suspect]
     Dosage: PO
     Route: 048
     Dates: end: 20080101
  5. OXYCODONE AND ACETAMINOPHEN [Suspect]
     Dosage: PO
     Route: 048
     Dates: end: 20080101
  6. ZOLPIDEM [Suspect]
     Dosage: PO
     Route: 048
     Dates: end: 20080101
  7. RABEPRAZOLE SODIUM [Suspect]
     Dosage: PO
     Route: 048
     Dates: end: 20080101
  8. ANTIHISTAMINE [Suspect]
     Dosage: PO
     Route: 048
     Dates: end: 20080101
  9. SKELETAL MUSCLE RELAXANT [Suspect]
  10. ZAFIRLUKAST [Suspect]
     Dosage: PO
     Route: 048
     Dates: end: 20080101
  11. VENLAFAXINE [Suspect]
     Dosage: PO
     Route: 048
     Dates: end: 20080101
  12. PREDNISONE [Suspect]
     Dosage: PO
     Route: 048
     Dates: end: 20080101

REACTIONS (1)
  - COMPLETED SUICIDE [None]
